FAERS Safety Report 22400050 (Version 1)
Quarter: 2023Q2

REPORT INFORMATION
  Report Type: Report from Study
  Country: DE (occurrence: None)
  Receive Date: 20230602
  Receipt Date: 20230602
  Transmission Date: 20230721
  Serious: Yes (Other)
  Sender: FDA-Public Use
  Company Number: DE-ROCHE-3358475

PATIENT
  Sex: Male

DRUGS (1)
  1. PRALSETINIB [Suspect]
     Active Substance: PRALSETINIB
     Indication: Neoplasm
     Route: 048

REACTIONS (1)
  - Neoplasm progression [Unknown]
